FAERS Safety Report 8098195-4 (Version None)
Quarter: 2012Q1

REPORT INFORMATION
  Report Type: 
  Country: None (occurrence: None)
  Receive Date: 20120128
  Receipt Date: 20110809
  Transmission Date: 20120608
  Serious: No
  Sender: FDA-Public Use
  Company Number: US-ABBOTT-11P-163-0845134-00

PATIENT
  Age: 15 Year
  Sex: Female

DRUGS (3)
  1. AMOXICILLIN [Concomitant]
     Indication: ACNE
  2. ACANYA [Concomitant]
     Indication: ACNE
     Dosage: 1.2-2.5 GEL ONCE DAILY
     Route: 061
  3. HUMIRA [Suspect]
     Indication: JUVENILE ARTHRITIS
     Dates: start: 20090101

REACTIONS (1)
  - SEASONAL ALLERGY [None]
